FAERS Safety Report 6146948-1 (Version None)
Quarter: 2009Q2

REPORT INFORMATION
  Report Type: 
  Country: None (occurrence: None)
  Receive Date: 20090407
  Receipt Date: 20090326
  Transmission Date: 20091009
  Serious: Yes (Congenital Anomaly)
  Sender: FDA-Public Use
  Company Number: GB-ELI_LILLY_AND_COMPANY-GB200903006573

PATIENT
  Age: 1 Day

DRUGS (10)
  1. FLUOXETINE [Suspect]
     Indication: DEPRESSION
     Dosage: 40 MG, UNK
     Route: 064
     Dates: start: 20030821, end: 20060807
  2. FLUOXETINE [Suspect]
     Dosage: 20 MG, UNK
     Route: 064
     Dates: start: 20060808
  3. PANTOPRAZOLE SODIUM [Concomitant]
     Indication: GASTRITIS
     Dosage: 20 MG, UNK
     Route: 064
     Dates: start: 20060606, end: 20060706
  4. OMEPRAZOLE [Concomitant]
     Dosage: UNK, UNK
     Dates: start: 20060703, end: 20060803
  5. BECLOMETHASONE DIPROPIONATE [Concomitant]
     Dosage: UNK, UNK
     Dates: start: 20060718
  6. DERBAC-M [Concomitant]
     Dates: start: 20060718
  7. GAVISCON /GFR/ [Concomitant]
  8. PARACETAMOL [Concomitant]
  9. PEPTAC                             /01521901/ [Concomitant]
  10. ALCOHOL [Concomitant]
     Dates: start: 20060101, end: 20060101

REACTIONS (2)
  - DRUG EXPOSURE DURING PREGNANCY [None]
  - RENAL DYSPLASIA [None]
